FAERS Safety Report 8997053 (Version 5)
Quarter: 2013Q3

REPORT INFORMATION
  Report Type: Spontaneous
  Country: US (occurrence: US)
  Receive Date: 20130104
  Receipt Date: 20130905
  Transmission Date: 20140515
  Serious: Yes (Hospitalization, Other)
  Sender: FDA-Public Use
  Company Number: US-009507513-1203USA01342

PATIENT
  Sex: Female
  Weight: 71.8 kg

DRUGS (5)
  1. FOSAMAX [Suspect]
     Indication: OSTEOPOROSIS
     Dosage: 70 MG, QW
     Route: 048
     Dates: end: 200812
  2. FOSAMAX [Suspect]
     Dosage: 10 MG, QD
     Route: 048
     Dates: start: 20000313
  3. FOSAMAX [Suspect]
     Indication: OSTEOPOROSIS
     Dosage: 70 MG, QW
     Route: 048
     Dates: end: 2010
  4. ALENDRONATE SODIUM [Suspect]
     Indication: OSTEOPOROSIS
     Dosage: 70 MG, QW
     Dates: start: 200905, end: 201103
  5. EVISTA [Concomitant]
     Dosage: 60 MG, QD
     Route: 048

REACTIONS (39)
  - Femur fracture [Recovered/Resolved]
  - Intramedullary rod insertion [Unknown]
  - Coronary arterial stent insertion [Unknown]
  - Coronary artery disease [Unknown]
  - Acute myocardial infarction [Unknown]
  - Peptic ulcer [Unknown]
  - Bladder repair [Unknown]
  - Low turnover osteopathy [Unknown]
  - Hysterectomy [Unknown]
  - Bladder neck suspension [Unknown]
  - Exostosis [Unknown]
  - Pleurisy [Unknown]
  - Type 2 diabetes mellitus [Unknown]
  - Appendicectomy [Unknown]
  - Hypertension [Unknown]
  - Dyslipidaemia [Unknown]
  - Balance disorder [Unknown]
  - Fall [Unknown]
  - Peptic ulcer [Unknown]
  - Anaemia postoperative [Recovering/Resolving]
  - Escherichia urinary tract infection [Recovered/Resolved]
  - Seasonal allergy [Unknown]
  - Hypercholesterolaemia [Unknown]
  - Cardiac failure congestive [Unknown]
  - Arthropathy [Unknown]
  - Arthroscopy [Unknown]
  - Tonsillectomy [Unknown]
  - Adenoidectomy [Unknown]
  - Osteopenia [Unknown]
  - Muscular weakness [Unknown]
  - Fall [Unknown]
  - Musculoskeletal pain [Unknown]
  - Arthralgia [Unknown]
  - Arthralgia [Unknown]
  - Gastrooesophageal reflux disease [Unknown]
  - Nausea [Unknown]
  - Gastric ulcer [Unknown]
  - Rash [Unknown]
  - Muscle spasms [Unknown]
